FAERS Safety Report 14125618 (Version 2)
Quarter: 2017Q4

REPORT INFORMATION
  Report Type: Spontaneous
  Country: GB (occurrence: GB)
  Receive Date: 20171025
  Receipt Date: 20171103
  Transmission Date: 20180321
  Serious: Yes (Other)
  Sender: FDA-Public Use
  Company Number: GB-TEVA-817987ROM

PATIENT
  Age: 57 Year
  Sex: Female

DRUGS (3)
  1. VANCOMYCIN [Suspect]
     Active Substance: VANCOMYCIN
     Indication: SEPSIS
     Route: 065
  2. PHENYTOIN. [Suspect]
     Active Substance: PHENYTOIN
  3. MEROPENEM. [Suspect]
     Active Substance: MEROPENEM
     Indication: SEPSIS
     Route: 042

REACTIONS (1)
  - Drug reaction with eosinophilia and systemic symptoms [Unknown]
